FAERS Safety Report 5472231-3 (Version None)
Quarter: 2007Q3

REPORT INFORMATION
  Report Type: 
  Country: None (occurrence: None)
  Receive Date: 20070926
  Receipt Date: 20070918
  Transmission Date: 20080115
  Serious: Yes (Other)
  Sender: FDA-Public Use
  Company Number: CHPA2007US09832

PATIENT
  Age: 60 Year
  Sex: Female

DRUGS (4)
  1. PRIVATE LABEL (NCH)(HICOTINE) TRANS-THERAPEUTIC-SYSTEM [Suspect]
     Indication: SMOKING CESSATION THERAPY
     Dosage: 21 MG, ONCE/SINGLE, TRANSDERMAL
     Route: 062
     Dates: start: 20070918, end: 20070918
  2. ANTIDIABETICS (NO INGREDIENTS/SUBSTANCES) [Concomitant]
  3. CARDIAC THERAPY (NO INGREDIENTS/SUBSTANCES) [Concomitant]
  4. STIOLACTONE [Concomitant]

REACTIONS (1)
  - CHEST PAIN [None]
